FAERS Safety Report 19018801 (Version 3)
Quarter: 2021Q1

REPORT INFORMATION
  Report Type: Report from Study
  Country: US (occurrence: US)
  Receive Date: 20210317
  Receipt Date: 20210327
  Transmission Date: 20210420
  Serious: Yes (Other)
  Sender: FDA-Public Use
  Company Number: NVSC2021US060732

PATIENT
  Sex: Female

DRUGS (1)
  1. PIQRAY [Suspect]
     Active Substance: ALPELISIB
     Indication: BREAST CANCER
     Dosage: 300 MG, QD
     Route: 048

REACTIONS (7)
  - Decreased appetite [Recovering/Resolving]
  - Rash [Recovering/Resolving]
  - Diabetes mellitus [Unknown]
  - Taste disorder [Not Recovered/Not Resolved]
  - Vomiting [Recovered/Resolved]
  - Hyperglycaemia [Recovering/Resolving]
  - Stomatitis [Unknown]
